FAERS Safety Report 8184725-0 (Version None)
Quarter: 2012Q1

REPORT INFORMATION
  Report Type: 
  Country: None (occurrence: None)
  Receive Date: 20120305
  Receipt Date: 20120305
  Transmission Date: 20120608
  Serious: Yes (Life-Threatening, Hospitalization)
  Sender: FDA-Public Use
  Company Number: None

PATIENT
  Sex: Female
  Weight: 51.255 kg

DRUGS (1)
  1. PRADAXA [Suspect]
     Indication: CEREBROVASCULAR ACCIDENT PROPHYLAXIS
     Dosage: 150 MG
     Route: 048
     Dates: start: 20111219, end: 20120118

REACTIONS (7)
  - RENAL FAILURE ACUTE [None]
  - BURNING SENSATION [None]
  - ASTHENIA [None]
  - GASTRIC HAEMORRHAGE [None]
  - ANAEMIA [None]
  - OESOPHAGEAL DISORDER [None]
  - SMALL INTESTINAL HAEMORRHAGE [None]
